FAERS Safety Report 5425655-4 (Version None)
Quarter: 2007Q3

REPORT INFORMATION
  Report Type: 
  Country: None (occurrence: None)
  Receive Date: 20070824
  Receipt Date: 20070814
  Transmission Date: 20080115
  Serious: Yes (Other)
  Sender: FDA-Public Use
  Company Number: BE-PFIZER INC-2007067880

PATIENT
  Age: 54 Year
  Sex: Female
  Weight: 58 kg

DRUGS (4)
  1. CHAMPIX [Suspect]
     Indication: SMOKING CESSATION THERAPY
     Route: 048
     Dates: start: 20070516, end: 20070523
  2. BISOPROLOL FUMARATE AND HYDROCHLOROTHIAZIDE [Concomitant]
     Route: 048
  3. ZUMESTON [Concomitant]
     Route: 048
  4. AMLODIPINE [Concomitant]
     Route: 048

REACTIONS (2)
  - HAEMORRHAGE [None]
  - POSTMENOPAUSAL HAEMORRHAGE [None]
